FAERS Safety Report 17089159 (Version 5)
Quarter: 2020Q2

REPORT INFORMATION
  Report Type: Report from Study
  Country: BR (occurrence: BR)
  Receive Date: 20191128
  Receipt Date: 20200413
  Transmission Date: 20200713
  Serious: Yes (Death, Hospitalization, Other)
  Sender: FDA-Public Use
  Company Number: NVSC2019BR048129

PATIENT
  Age: 57 Year
  Sex: Male

DRUGS (3)
  1. VOTRIENT [Suspect]
     Active Substance: PAZOPANIB HYDROCHLORIDE
     Indication: PRODUCT USED FOR UNKNOWN INDICATION
     Dosage: 1 DF, QD
     Route: 065
     Dates: start: 2019
  2. VOTRIENT [Suspect]
     Active Substance: PAZOPANIB HYDROCHLORIDE
     Dosage: 2 DF
     Route: 065
  3. ELIQUIS [Suspect]
     Active Substance: APIXABAN
     Indication: THROMBOSIS
     Dosage: UNK
     Route: 065

REACTIONS (17)
  - Therapeutic response unexpected [Unknown]
  - Duodenal ulcer [Recovered/Resolved]
  - Haemorrhage [Unknown]
  - Malaise [Recovered/Resolved]
  - Fatigue [Not Recovered/Not Resolved]
  - Dysstasia [Recovering/Resolving]
  - Pruritus [Unknown]
  - Hypersensitivity [Unknown]
  - Skin injury [Unknown]
  - Blood disorder [Recovered/Resolved]
  - Asthenia [Recovering/Resolving]
  - Neoplasm [Fatal]
  - Haemoglobin decreased [Unknown]
  - Blood loss anaemia [Recovering/Resolving]
  - Drug ineffective [Unknown]
  - Intestinal haemorrhage [Recovered/Resolved]
  - Vomiting [Not Recovered/Not Resolved]

NARRATIVE: CASE EVENT DATE: 201910
